FAERS Safety Report 14840567 (Version 2)
Quarter: 2018Q2

REPORT INFORMATION
  Report Type: Report from Study
  Country: US (occurrence: US)
  Receive Date: 20180503
  Receipt Date: 20180507
  Transmission Date: 20180711
  Serious: Yes (Death)
  Sender: FDA-Public Use
  Company Number: US-ROCHE-2118435

PATIENT
  Age: 56 Year
  Sex: Male

DRUGS (5)
  1. PREDNISONE. [Concomitant]
     Active Substance: PREDNISONE
     Dosage: AS R-CHOP THERAPY
     Route: 065
     Dates: start: 20170926, end: 20180214
  2. DOXORUBICIN [Concomitant]
     Active Substance: DOXORUBICIN
     Dosage: AS R-CHOP THERAPY
     Route: 065
     Dates: start: 20170926, end: 20180214
  3. VINCRISTINE [Concomitant]
     Active Substance: VINCRISTINE
     Dosage: AS R-CHOP THERAPY
     Route: 065
     Dates: start: 20170926, end: 20180214
  4. CYCLOPHOSPHAMIDE. [Concomitant]
     Active Substance: CYCLOPHOSPHAMIDE
     Dosage: AS R-CHOP THERAPY
     Route: 065
     Dates: start: 20170926, end: 20180214
  5. RITUXAN [Suspect]
     Active Substance: RITUXIMAB
     Indication: DIFFUSE LARGE B-CELL LYMPHOMA
     Dosage: ONGOING: NO
     Route: 065
     Dates: start: 20170926

REACTIONS (1)
  - Death [Fatal]

NARRATIVE: CASE EVENT DATE: 20180330
